FAERS Safety Report 19197629 (Version 5)
Quarter: 2021Q3

REPORT INFORMATION
  Report Type: Spontaneous
  Country: FR (occurrence: FR)
  Receive Date: 20210430
  Receipt Date: 20210804
  Transmission Date: 20211014
  Serious: Yes (Other)
  Sender: FDA-Public Use
  Company Number: FR-AUROBINDO-AUR-APL-2021-009595

PATIENT
  Age: 74 Year
  Sex: Female

DRUGS (7)
  1. BISOPROLOL QUIVER 5 MG SCORED TABLET [Suspect]
     Active Substance: BISOPROLOL FUMARATE
     Indication: ARRHYTHMIA
     Dosage: 5 MILLIGRAM, ONCE A DAY
     Route: 048
     Dates: start: 20210119, end: 20210407
  2. ELIQUIS [Suspect]
     Active Substance: APIXABAN
     Indication: ARRHYTHMIA
     Dosage: 10 MILLIGRAM, ONCE A DAY
     Route: 048
     Dates: start: 20210114
  3. GANFORT [Concomitant]
     Active Substance: BIMATOPROST\TIMOLOL
     Indication: PRODUCT USED FOR UNKNOWN INDICATION
     Dosage: 1 GTT DROPS, ONCE A DAY
     Route: 065
  4. DEDROGYL [Concomitant]
     Active Substance: CALCIFEDIOL
     Indication: PRODUCT USED FOR UNKNOWN INDICATION
     Dosage: UNK UNK, ONCE A DAY
     Route: 065
  5. AMIODARONE ARROW 200MG SCORED TABLETS [Suspect]
     Active Substance: AMIODARONE
     Dosage: 200 MILLIGRAM, ONCE A DAY
     Route: 048
     Dates: start: 20210302, end: 20210407
  6. AMIODARONE ARROW 200MG SCORED TABLETS [Suspect]
     Active Substance: AMIODARONE
     Indication: ARRHYTHMIA
     Dosage: 400 MILLIGRAM, ONCE A DAY
     Route: 048
     Dates: start: 20210211, end: 20210228
  7. NUTROF TOTAL [Concomitant]
     Indication: EYE DISORDER
     Dosage: UNK
     Route: 065

REACTIONS (8)
  - Intentional product misuse [Unknown]
  - Dyspnoea exertional [Recovered/Resolved]
  - Condition aggravated [Unknown]
  - Cataract [Not Recovered/Not Resolved]
  - Hypothyroidism [Not Recovered/Not Resolved]
  - Diarrhoea [Recovered/Resolved]
  - Constipation [Recovered/Resolved]
  - Visual acuity reduced [Not Recovered/Not Resolved]

NARRATIVE: CASE EVENT DATE: 202102
